FAERS Safety Report 6679623 (Version 16)
Quarter: 2013Q1

REPORT INFORMATION
  Report Type: Spontaneous
  Country: US (occurrence: US)
  Receive Date: 20080624
  Receipt Date: 20130102
  Transmission Date: 20140127
  Serious: Yes (Hospitalization, Congenital Anomaly, Other)
  Sender: FDA-Public Use
  Company Number: US-PFIZER INC-2008049851

PATIENT
  Sex: Female
  Weight: 2 kg

DRUGS (8)
  1. ZOLOFT [Suspect]
     Dosage: 50 MG, UNK
     Route: 064
     Dates: start: 20041028
  2. LEXAPRO [Concomitant]
     Dosage: UNK
     Route: 064
  3. PRENATAL VITAMINS [Concomitant]
     Dosage: UNK
     Route: 064
  4. TYLENOL [Concomitant]
     Dosage: UNK
     Route: 064
  5. AMOXICILLIN [Concomitant]
     Dosage: UNK
     Route: 064
  6. PROMETHAZINE [Concomitant]
     Dosage: UNK
     Route: 064
  7. ZITHROMAX [Concomitant]
     Dosage: UNK
     Route: 064
  8. DURATUSS [Concomitant]
     Dosage: UNK
     Route: 064

REACTIONS (45)
  - Foetal exposure during pregnancy [Unknown]
  - Cleft lip and palate [Unknown]
  - Craniosynostosis [Unknown]
  - Gastrooesophageal reflux disease [Recovered/Resolved]
  - Mild mental retardation [Unknown]
  - Mixed receptive-expressive language disorder [Unknown]
  - Weight gain poor [Unknown]
  - Fine motor delay [Unknown]
  - Abdominal pain [Unknown]
  - Constipation [Unknown]
  - Perinatal brain damage [Unknown]
  - Feeding disorder neonatal [Recovering/Resolving]
  - Microcephaly [Unknown]
  - Oxygen saturation decreased [Unknown]
  - Multiple congenital abnormalities [Unknown]
  - Congenital foot malformation [Unknown]
  - Growth retardation [Unknown]
  - Chondrodystrophy [Unknown]
  - Cerebral calcification [Unknown]
  - Rubinstein-Taybi syndrome [Unknown]
  - Otitis media acute [Unknown]
  - Wolf-Hirschhorn syndrome [Unknown]
  - Clinodactyly [Unknown]
  - Strabismus [Recovering/Resolving]
  - Developmental delay [Unknown]
  - Clavicle fracture [Unknown]
  - Nose deformity [Unknown]
  - Angelman^s syndrome [Unknown]
  - High arched palate [Unknown]
  - Neuropathy peripheral [Unknown]
  - Hypermetropia [Recovering/Resolving]
  - Acrochordon [Unknown]
  - Astigmatism [Unknown]
  - Aggression [Unknown]
  - Gait disturbance [Unknown]
  - Anxiety [Unknown]
  - Diarrhoea [Unknown]
  - Decreased appetite [Unknown]
  - Autism [Unknown]
  - Cholesteatoma [Unknown]
  - Exfoliative rash [Unknown]
  - Sinusitis [Unknown]
  - Epistaxis [Unknown]
  - Otitis media chronic [Unknown]
  - Hypertonia [Unknown]
